FAERS Safety Report 7765518-2 (Version None)
Quarter: 2011Q3

REPORT INFORMATION
  Report Type: 
  Country: None (occurrence: None)
  Receive Date: 20110921
  Receipt Date: 20110909
  Transmission Date: 20111222
  Serious: Yes (Life-Threatening, Hospitalization)
  Sender: FDA-Public Use
  Company Number: DE-GENENTECH-265372

PATIENT
  Age: 60 Year
  Sex: Female

DRUGS (18)
  1. METHYLPREDNISOLONE [Suspect]
     Indication: RHEUMATOID ARTHRITIS
     Dosage: UNK
     Route: 065
     Dates: start: 19980101, end: 20080101
  2. TERIPARATIDE [Concomitant]
     Dosage: UNK
     Dates: end: 20070501
  3. CHLORQUIN [Concomitant]
     Indication: RHEUMATOID ARTHRITIS
     Dosage: UNK
     Dates: start: 20060201, end: 20070201
  4. ADALIMUMAB [Concomitant]
     Indication: RHEUMATOID ARTHRITIS
     Dosage: UNK
     Dates: start: 20040701, end: 20041201
  5. BISOPROLOL FUMARATE [Concomitant]
     Indication: HYPERTENSION
     Dosage: UNK
     Dates: start: 20050301
  6. BISOPROLOL FUMARATE [Concomitant]
     Dosage: UNK
     Dates: start: 20050701
  7. ETANERCEPT [Concomitant]
     Indication: RHEUMATOID ARTHRITIS
     Dosage: UNK
     Dates: start: 20090201, end: 20090201
  8. METHOTREXATE [Suspect]
     Dosage: 10 MG, 1/WEEK
     Route: 065
     Dates: start: 20070201, end: 20080101
  9. TORSEMIDE [Concomitant]
     Indication: HYPERTENSION
     Dosage: UNK
     Dates: start: 20051201
  10. METHOTREXATE [Suspect]
     Indication: RHEUMATOID ARTHRITIS
     Dosage: 10 MG, 1/WEEK
     Route: 065
     Dates: start: 20001201, end: 20050101
  11. METHOTREXATE [Suspect]
     Dosage: UNK
     Route: 065
     Dates: start: 20050201, end: 20050501
  12. ETANERCEPT [Concomitant]
     Dosage: UNK
     Dates: start: 20030701, end: 20031001
  13. INTERFERON [Concomitant]
     Indication: RHEUMATOID ARTHRITIS
     Dosage: UNK
     Dates: start: 20021101, end: 20030601
  14. LEFLUNOMIDE [Concomitant]
     Indication: RHEUMATOID ARTHRITIS
     Dosage: UNK
     Dates: start: 20031101, end: 20040701
  15. RITUXIMAB [Suspect]
     Indication: RHEUMATOID ARTHRITIS
     Dosage: UNK
     Route: 065
     Dates: start: 20070426, end: 20070510
  16. HYDROXYCHLOROQUINE SULFATE [Concomitant]
     Indication: PRODUCT USED FOR UNKNOWN INDICATION
     Dosage: UNK
     Dates: start: 20060201, end: 20070201
  17. PALLADONE [Concomitant]
     Indication: PRODUCT USED FOR UNKNOWN INDICATION
     Dosage: UNK
     Dates: start: 20060201
  18. TORSEMIDE [Concomitant]
     Dosage: UNK
     Dates: start: 20070101

REACTIONS (5)
  - RENAL FAILURE [None]
  - CELLULITIS [None]
  - PNEUMONIA LEGIONELLA [None]
  - CEREBROVASCULAR ACCIDENT [None]
  - SEPTIC SHOCK [None]
